FAERS Safety Report 10267433 (Version 1)
Quarter: 2014Q2

REPORT INFORMATION
  Report Type: Spontaneous
  Country: FR (occurrence: FR)
  Receive Date: 20140630
  Receipt Date: 20140630
  Transmission Date: 20141212
  Serious: Yes (Other)
  Sender: FDA-Public Use
  Company Number: FR-DSJP-DSE-2014-112815

PATIENT
  Sex: 0

DRUGS (1)
  1. COOLMETEC 20 MG / 12,5 MG [Suspect]
     Indication: HYPERTENSION
     Dosage: 20/12,5 MG QD
     Route: 048
     Dates: start: 201211, end: 20140407

REACTIONS (4)
  - Weight decreased [Recovered/Resolved]
  - Diarrhoea [Recovered/Resolved]
  - Vomiting [Recovered/Resolved]
  - Malaise [Recovered/Resolved]
